FAERS Safety Report 17241263 (Version 3)
Quarter: 2020Q1

REPORT INFORMATION
  Report Type: Report from Study
  Country: FR (occurrence: FR)
  Receive Date: 20200107
  Receipt Date: 20200305
  Transmission Date: 20200409
  Serious: Yes (Hospitalization)
  Sender: FDA-Public Use
  Company Number: FR-ROCHE-2512025

PATIENT
  Age: 64 Year
  Sex: Male
  Weight: 87 kg

DRUGS (2)
  1. ATEZOLIZUMAB. [Suspect]
     Active Substance: ATEZOLIZUMAB
     Indication: BLADDER CANCER
     Dosage: DATE OF MOST RECENT DOSE OF ATEZOLIZUMAB (1200 MG) PRIOR TO SAE ONSET: 04/DEC/2019?HE HAD RECEIVED C
     Route: 042
     Dates: start: 20191003
  2. BCG [Suspect]
     Active Substance: BCG VACCINE
     Indication: BLADDER CANCER
     Dosage: DATE OF MOST RECENT DOSE OF BCG (50 ML) PRIOR TO SAE ONSET: 14/NOV/2019?HE HAD RECEIVED CUMULATIVE D
     Route: 050
     Dates: start: 20191003

REACTIONS (3)
  - Alanine aminotransferase increased [Not Recovered/Not Resolved]
  - Hepatitis E [Recovered/Resolved]
  - Pyrexia [Not Recovered/Not Resolved]

NARRATIVE: CASE EVENT DATE: 20191217
